FAERS Safety Report 17322730 (Version 1)
Quarter: 2020Q1

REPORT INFORMATION
  Report Type: Spontaneous
  Country: US (occurrence: US)
  Receive Date: 20200124
  Receipt Date: 20200124
  Transmission Date: 20200409
  Serious: Yes (Hospitalization)
  Sender: FDA-Public Use
  Company Number: None

PATIENT
  Age: 63 Year
  Sex: Male

DRUGS (5)
  1. IBUPROFEN 800MG [Concomitant]
     Active Substance: IBUPROFEN
  2. LABETALOL 100MG [Concomitant]
  3. HYDROCHLOROTHIAZIDE 12.5MG [Concomitant]
     Active Substance: HYDROCHLOROTHIAZIDE
  4. LOSARTAN. [Suspect]
     Active Substance: LOSARTAN
     Indication: HYPERTENSION
     Route: 048
     Dates: start: 20191104, end: 20191116
  5. LEVOBUNOLOL 0.5% [Concomitant]

REACTIONS (3)
  - Product substitution issue [None]
  - Hypertensive emergency [None]
  - Drug ineffective [None]

NARRATIVE: CASE EVENT DATE: 20191116
